FAERS Safety Report 15348117 (Version 1)
Quarter: 2018Q3

REPORT INFORMATION
  Report Type: Spontaneous
  Country: US (occurrence: US)
  Receive Date: 20180904
  Receipt Date: 20180904
  Transmission Date: 20181010
  Serious: No
  Sender: FDA-Public Use
  Company Number: US-AMNEAL PHARMACEUTICALS-2018AMN00367

PATIENT
  Sex: Male
  Weight: 81.63 kg

DRUGS (5)
  1. METFORMIN [Concomitant]
     Active Substance: METFORMIN HYDROCHLORIDE
  2. DUTASTERIDE. [Suspect]
     Active Substance: DUTASTERIDE
     Dosage: .5 MG, 1X/DAY
     Dates: end: 20180621
  3. COZAAR [Concomitant]
     Active Substance: LOSARTAN POTASSIUM
  4. THYROID MEDICATION [Concomitant]
     Active Substance: UNSPECIFIED INGREDIENT
  5. BABY ASPIRIN [Concomitant]
     Active Substance: ASPIRIN

REACTIONS (2)
  - Product physical issue [Unknown]
  - Oral discomfort [Recovered/Resolved]
